FAERS Safety Report 9861801 (Version 4)
Quarter: 2017Q2

REPORT INFORMATION
  Report Type: Report from Study
  Country: US (occurrence: US)
  Receive Date: 20140203
  Receipt Date: 20170519
  Transmission Date: 20170830
  Serious: Yes (Hospitalization, Other)
  Sender: FDA-Public Use
  Company Number: US-BEH-2012032342

PATIENT
  Age: 30 Year
  Sex: Female
  Weight: 53.71 kg

DRUGS (7)
  1. BERINERT [Suspect]
     Active Substance: HUMAN C1-ESTERASE INHIBITOR
     Dosage: RATE: 4 ML/MIN
     Route: 042
     Dates: start: 20120424
  2. BERINERT [Suspect]
     Active Substance: HUMAN C1-ESTERASE INHIBITOR
     Dosage: 1200 IU, PRN
     Route: 042
  3. BERINERT [Suspect]
     Active Substance: HUMAN C1-ESTERASE INHIBITOR
     Dosage: INFUSION RATE 4 ML/MIN
     Route: 042
     Dates: start: 20120511
  4. ZOFRAN [Concomitant]
     Active Substance: ONDANSETRON HYDROCHLORIDE
     Indication: VOMITING
     Dosage: AS NEEDED.
     Route: 042
     Dates: start: 20120424, end: 20120511
  5. DILAUDID [Concomitant]
     Active Substance: HYDROMORPHONE HYDROCHLORIDE
     Indication: PAIN
     Dosage: 1 MG EVERY 2 HOURS PRN
     Route: 042
     Dates: start: 20120424, end: 20120511
  6. BERINERT [Suspect]
     Active Substance: HUMAN C1-ESTERASE INHIBITOR
     Indication: HEREDITARY ANGIOEDEMA
     Dosage: RATE: 4 ML/MIN
     Route: 042
     Dates: start: 20101201
  7. BERINERT [Suspect]
     Active Substance: HUMAN C1-ESTERASE INHIBITOR
     Dosage: GIVEN IN ER
     Route: 042
     Dates: start: 20120607

REACTIONS (7)
  - Abortion spontaneous [Recovered/Resolved]
  - Hereditary angioedema [Recovered/Resolved]
  - Exposure during pregnancy [Unknown]
  - Hereditary angioedema [Recovered/Resolved]
  - Underdose [Unknown]
  - Hospitalisation [Unknown]
  - Hereditary angioedema [Unknown]

NARRATIVE: CASE EVENT DATE: 20120509
